FAERS Safety Report 13228444 (Version 1)
Quarter: 2017Q1

REPORT INFORMATION
  Report Type: Spontaneous
  Country: US (occurrence: US)
  Receive Date: 20170213
  Receipt Date: 20170213
  Transmission Date: 20170428
  Serious: No
  Sender: FDA-Public Use
  Company Number: US-ROCHE-1862765

PATIENT
  Age: 57 Year
  Sex: Female
  Weight: 76.73 kg

DRUGS (3)
  1. XOLAIR [Suspect]
     Active Substance: OMALIZUMAB
     Indication: URTICARIA
     Route: 058
     Dates: start: 20160519
  2. PREDNISONE. [Concomitant]
     Active Substance: PREDNISONE
  3. XOLAIR [Suspect]
     Active Substance: OMALIZUMAB
     Route: 058
     Dates: start: 20160630, end: 20161215

REACTIONS (3)
  - Urticaria [Recovered/Resolved]
  - Thyroid mass [Unknown]
  - Drug ineffective [Unknown]

NARRATIVE: CASE EVENT DATE: 20161101
